FAERS Safety Report 25056989 (Version 1)
Quarter: 2025Q1

REPORT INFORMATION
  Report Type: Spontaneous
  Country: US (occurrence: US)
  Receive Date: 20250310
  Receipt Date: 20250310
  Transmission Date: 20250409
  Serious: Yes (Other)
  Sender: APOTEX
  Company Number: US-APOTEX-2025AP002895

PATIENT
  Age: 70 Year
  Sex: Female

DRUGS (3)
  1. MELPHALAN [Suspect]
     Active Substance: MELPHALAN
     Indication: Chordoma
     Route: 013
  2. CARBOPLATIN [Suspect]
     Active Substance: CARBOPLATIN
     Indication: Chordoma
     Route: 013
  3. TOPOTECAN [Suspect]
     Active Substance: TOPOTECAN HYDROCHLORIDE
     Indication: Chordoma
     Route: 013

REACTIONS (2)
  - Artery dissection [Unknown]
  - Haematoma [Unknown]
